FAERS Safety Report 6652561-X (Version None)
Quarter: 2010Q1

REPORT INFORMATION
  Report Type: 
  Country: None (occurrence: None)
  Receive Date: 20100325
  Receipt Date: 20100325
  Transmission Date: 20100710
  Serious: Yes (Disabling)
  Sender: FDA-Public Use
  Company Number: None

PATIENT
  Age: 44 Year
  Sex: Male

DRUGS (1)
  1. EPZICOM [Suspect]
     Indication: HIV INFECTION
     Dosage: 1 TABLET ONCE DAILY PO
     Route: 048
     Dates: start: 20080506, end: 20100310

REACTIONS (3)
  - DIARRHOEA [None]
  - DIZZINESS [None]
  - SYNCOPE [None]
